FAERS Safety Report 19821186 (Version 1)
Quarter: 2021Q3

REPORT INFORMATION
  Report Type: Spontaneous
  Country: US (occurrence: US)
  Receive Date: 20210913
  Receipt Date: 20210913
  Transmission Date: 20211014
  Serious: No
  Sender: FDA-Public Use
  Company Number: None

PATIENT
  Age: 74 Year
  Sex: Female
  Weight: 81.65 kg

DRUGS (15)
  1. LOSARTAN. [Concomitant]
     Active Substance: LOSARTAN
  2. VIT B [Concomitant]
     Active Substance: VITAMIN B
  3. ALBUTEROL SULFATE INHALATION AEROSOL [Suspect]
     Active Substance: ALBUTEROL SULFATE
  4. SYNTHROID [Concomitant]
     Active Substance: LEVOTHYROXINE SODIUM
  5. GAS?X [Concomitant]
     Active Substance: DIMETHICONE
  6. VITAMIN C [Concomitant]
     Active Substance: ASCORBIC ACID
  7. CPAP MACHINE [Concomitant]
  8. ALBUTEROL SULFATE INHALER [Concomitant]
     Active Substance: ALBUTEROL SULFATE
  9. FLOMAX [Concomitant]
     Active Substance: TAMSULOSIN HYDROCHLORIDE
  10. RABERPROZOLE [Concomitant]
  11. CRESTOR [Concomitant]
     Active Substance: ROSUVASTATIN CALCIUM
  12. LYRICA [Concomitant]
     Active Substance: PREGABALIN
  13. NASICOBAL NASAL SPRAY [Concomitant]
  14. VIT D GUMMIES [Concomitant]
  15. CALCIUM GUMMIES [Concomitant]

REACTIONS (3)
  - Chest pain [None]
  - Recalled product [None]
  - Drug ineffective [None]

NARRATIVE: CASE EVENT DATE: 20210908
